FAERS Safety Report 9701751 (Version 4)
Quarter: 2013Q4

REPORT INFORMATION
  Report Type: Spontaneous
  Country: SE (occurrence: SE)
  Receive Date: 20131121
  Receipt Date: 20131209
  Transmission Date: 20140711
  Serious: Yes (Other)
  Sender: FDA-Public Use
  Company Number: SE-PFIZER INC-2013330001

PATIENT
  Age: 60 Year
  Sex: Female

DRUGS (7)
  1. RAMIPRIL [Suspect]
     Dosage: UNK
     Route: 048
  2. METOPROLOL TARTRATE [Suspect]
     Dosage: UNK
     Route: 048
  3. BRILIQUE [Suspect]
     Dosage: UNK
     Route: 048
  4. DAIVOBET [Concomitant]
     Dosage: UNK
     Route: 065
  5. LEVAXIN [Concomitant]
     Dosage: UNK
     Route: 065
  6. ATORVASTATIN [Concomitant]
     Dosage: UNK
     Route: 065
  7. TROMBYL [Concomitant]
     Dosage: UNK
     Route: 065

REACTIONS (3)
  - Peripheral ischaemia [Unknown]
  - Pruritus [Unknown]
  - Urticaria [Unknown]
